FAERS Safety Report 9266675 (Version 3)
Quarter: 2013Q4

REPORT INFORMATION
  Report Type: Spontaneous
  Country: US (occurrence: US)
  Receive Date: 20130502
  Receipt Date: 20131111
  Transmission Date: 20140711
  Serious: Yes (Hospitalization)
  Sender: FDA-Public Use
  Company Number: US-BAYER-2013-051998

PATIENT
  Age: 31 Year
  Sex: Female
  Weight: 70.3 kg

DRUGS (3)
  1. YAZ [Suspect]
     Indication: ACNE
     Dosage: UNK
     Dates: start: 200907, end: 201004
  2. YAZ [Suspect]
     Indication: CONTRACEPTION
  3. ADVIL [Concomitant]

REACTIONS (7)
  - Cerebrovascular accident [None]
  - Injury [None]
  - Pain [None]
  - Emotional distress [None]
  - Fear [None]
  - Anxiety [None]
  - Pain [None]
